FAERS Safety Report 4992073-2 (Version None)
Quarter: 2006Q2

REPORT INFORMATION
  Report Type: 
  Country: None (occurrence: None)
  Receive Date: 20060504
  Receipt Date: 20060424
  Transmission Date: 20061013
  Serious: Yes (Other)
  Sender: FDA-Public Use
  Company Number: IT-GILEAD-2006-0009507

PATIENT
  Age: 29 Year
  Sex: Male

DRUGS (7)
  1. VIREAD [Suspect]
     Indication: HIV INFECTION
  2. LAMIVUDINE [Concomitant]
     Indication: HIV INFECTION
  3. LOPINAVIR W/RITONAVIR [Concomitant]
     Indication: HIV INFECTION
  4. DEFLAZACORT [Concomitant]
     Indication: PEMPHIGUS
  5. AZATHIOPRINE [Concomitant]
     Indication: PEMPHIGUS
  6. CYCLOSPORINE [Concomitant]
     Indication: PEMPHIGUS
     Route: 048
  7. CYCLOSPORINE [Concomitant]
     Route: 048

REACTIONS (6)
  - ABDOMINAL DISCOMFORT [None]
  - DRUG INTERACTION [None]
  - FATIGUE [None]
  - HEADACHE [None]
  - RENAL IMPAIRMENT [None]
  - THERAPEUTIC AGENT TOXICITY [None]
